FAERS Safety Report 6680218-8 (Version None)
Quarter: 2010Q2

REPORT INFORMATION
  Report Type: 
  Country: None (occurrence: None)
  Receive Date: 20100413
  Receipt Date: 20100402
  Transmission Date: 20101027
  Serious: Yes (Other)
  Sender: FDA-Public Use
  Company Number: US-ROCHE-695324

PATIENT
  Sex: Male
  Weight: 90.4 kg

DRUGS (4)
  1. CELLCEPT [Suspect]
     Indication: DRUG USE FOR UNKNOWN INDICATION
     Route: 048
     Dates: start: 20100201
  2. ACTOS [Concomitant]
  3. IBUPROFEN [Concomitant]
  4. PREDNISOLONE [Concomitant]

REACTIONS (5)
  - COMA [None]
  - DYSPNOEA [None]
  - HYPOTENSION [None]
  - MENTAL STATUS CHANGES [None]
  - RESPIRATORY FAILURE [None]
